FAERS Safety Report 20333661 (Version 2)
Quarter: 2022Q1

REPORT INFORMATION
  Report Type: Spontaneous
  Country: US (occurrence: US)
  Receive Date: 20220113
  Receipt Date: 20220128
  Transmission Date: 20220423
  Serious: Yes (Other)
  Sender: FDA-Public Use
  Company Number: US-TEVA-2022-US-1997452

PATIENT
  Age: 12 Month
  Sex: Male

DRUGS (3)
  1. ERYTHROMYCIN [Suspect]
     Active Substance: ERYTHROMYCIN
     Indication: Impaired gastric emptying
     Route: 065
  2. ACARBOSE [Suspect]
     Active Substance: ACARBOSE
     Indication: Hypoglycaemia
     Route: 065
  3. DEXTROSE [Suspect]
     Active Substance: DEXTROSE
     Indication: Hypoglycaemia
     Dosage: VIA G-TUBE
     Route: 050

REACTIONS (2)
  - Hypoglycaemia [Recovering/Resolving]
  - Drug ineffective [Unknown]
